FAERS Safety Report 9563410 (Version 1)
Quarter: 2013Q3

REPORT INFORMATION
  Report Type: Spontaneous
  Country: US (occurrence: None)
  Receive Date: 20130926
  Receipt Date: 20130926
  Transmission Date: 20140515
  Serious: Yes (Hospitalization)
  Sender: FDA-Public Use
  Company Number: None

PATIENT
  Age: 64 Year
  Sex: Male
  Weight: 96.6 kg

DRUGS (1)
  1. IBUPROFEN [Suspect]
     Indication: PAIN MANAGEMENT
     Route: 048

REACTIONS (1)
  - Upper gastrointestinal haemorrhage [None]
